FAERS Safety Report 10096658 (Version 2)
Quarter: 2014Q2

REPORT INFORMATION
  Report Type: Report from Study
  Country: US (occurrence: US)
  Receive Date: 20140422
  Receipt Date: 20140620
  Transmission Date: 20141212
  Serious: Yes (Hospitalization, Other)
  Sender: FDA-Public Use
  Company Number: US-PURDUE-USA-2014-0113047

PATIENT
  Sex: Male

DRUGS (1)
  1. OXY CR TAB [Suspect]
     Indication: PAIN
     Dosage: 80 MG, Q8H
     Route: 048

REACTIONS (2)
  - Cardiac neoplasm unspecified [Not Recovered/Not Resolved]
  - Tooth extraction [Recovered/Resolved]
